FAERS Safety Report 8522950-7 (Version None)
Quarter: 2012Q3

REPORT INFORMATION
  Report Type: 
  Country: None (occurrence: None)
  Receive Date: 20120720
  Receipt Date: 20120713
  Transmission Date: 20120928
  Serious: No
  Sender: FDA-Public Use
  Company Number: US-BIOGENIDEC-2012BI025975

PATIENT
  Age: 37 Year
  Sex: Female

DRUGS (1)
  1. TYSABRI [Suspect]
     Indication: MULTIPLE SCLEROSIS
     Route: 042
     Dates: start: 20061025

REACTIONS (7)
  - INSOMNIA [None]
  - DEHYDRATION [None]
  - URINARY TRACT INFECTION [None]
  - PNEUMONIA [None]
  - CHILLS [None]
  - EAR INFECTION [None]
  - PYREXIA [None]
